FAERS Safety Report 9498466 (Version 1)
Quarter: 2013Q3

REPORT INFORMATION
  Report Type: Spontaneous
  Country: US (occurrence: None)
  Receive Date: 20130830
  Receipt Date: 20130830
  Transmission Date: 20140515
  Serious: Yes (Hospitalization)
  Sender: FDA-Public Use
  Company Number: SYM-2013-10015

PATIENT
  Age: 78 Year
  Sex: Female
  Weight: 74 kg

DRUGS (14)
  1. 5-FLUOROURACIL [Suspect]
     Indication: COLON CANCER STAGE II
  2. LEUCOVORIN CALCIUM [Suspect]
     Indication: COLON CANCER STAGE II
  3. OXALIPLATIN (OXALIPLATIN) [Suspect]
     Indication: COLON CANCER STAGE II
  4. SERTRALINE (SERTRALINE) (SERTRALINE) [Concomitant]
  5. LISINOPRIL (LISINOPRIL) (LISINOPRIL) [Concomitant]
  6. ATENOLOL (ATENOLOL) (ATENOLOL) [Concomitant]
  7. MULTIVITAMIN (VITAMINS NOS) (VITAMINS NOS) [Concomitant]
  8. FOLIC ACID (FOLIC ACID) (FOLIC ACID) [Concomitant]
  9. SIMVASTATIN (SIMVASTATIN) (SIMVASTATIN) [Concomitant]
  10. WARFARIN (WARFARIN (WARFARIN) [Concomitant]
  11. MEGESTROL ACETATE (MEGESTROL ACETATE) (MEGESTROL ACETATE) [Concomitant]
  12. FERROUS FUMARATE (FERROUS FUMARATE) (FERROUS FUMARATE) [Concomitant]
  13. ONDANSETRON (ONDANSETRON) (ONDANSETRON) [Concomitant]
  14. PROCHLORPERAZINE (PROCHLORPERAZINE) (PROHLORPERAZINE) [Concomitant]

REACTIONS (13)
  - Neutropenia [None]
  - Thrombocytopenia [None]
  - Anaemia [None]
  - Bronchoalveolar lavage abnormal [None]
  - Candida infection [None]
  - Cough [None]
  - Nausea [None]
  - Dizziness [None]
  - Decreased appetite [None]
  - Asthenia [None]
  - Wheezing [None]
  - Lung infiltration [None]
  - Cardio-respiratory arrest [None]
